FAERS Safety Report 9973650 (Version 3)
Quarter: 2014Q2

REPORT INFORMATION
  Report Type: Report from Study
  Country: JP (occurrence: JP)
  Receive Date: 20140306
  Receipt Date: 20140425
  Transmission Date: 20141212
  Serious: Yes (Death, Other)
  Sender: FDA-Public Use
  Company Number: JP-TAKEDA-2014TJP002409

PATIENT
  Age: 65 Year
  Sex: Female

DRUGS (6)
  1. ALOGLIPTIN [Suspect]
     Indication: TYPE 2 DIABETES MELLITUS
     Dosage: 25 MG, QD
     Route: 048
     Dates: start: 20121126, end: 20130315
  2. ACTOS TABLETS 30 [Suspect]
     Indication: TYPE 2 DIABETES MELLITUS
     Dosage: 15 MG, QD
     Route: 048
     Dates: start: 201206
  3. FAMOTIDINE [Concomitant]
     Indication: GASTRIC ULCER
     Dosage: 20 MG, 1 DAYS
     Route: 048
  4. AMLODIPINE                         /00972402/ [Concomitant]
     Dosage: 5 MG, 1 DAYS
     Route: 048
  5. SIGMART [Concomitant]
     Indication: ANGINA PECTORIS
     Dosage: 5 MG, 1DAYS
     Route: 048
  6. ZETIA [Concomitant]
     Dosage: 10 MG, 1 DAYS
     Route: 048

REACTIONS (2)
  - Uterine cancer [Fatal]
  - Condition aggravated [Fatal]
